FAERS Safety Report 5106676-8 (Version None)
Quarter: 2006Q3

REPORT INFORMATION
  Report Type: 
  Country: None (occurrence: None)
  Receive Date: 20060918
  Receipt Date: 20060906
  Transmission Date: 20061208
  Serious: Yes (Other)
  Sender: FDA-Public Use
  Company Number: PHFR2006GB02773

PATIENT
  Sex: Male

DRUGS (1)
  1. TRILEPTAL [Suspect]
     Indication: EPILEPSY
     Dosage: REDUCING DOSE TO WITHDRAW
     Route: 065

REACTIONS (3)
  - GAIT DISTURBANCE [None]
  - ILLUSION [None]
  - THINKING ABNORMAL [None]
